FAERS Safety Report 18296006 (Version 4)
Quarter: 2020Q4

REPORT INFORMATION
  Report Type: Report from Study
  Country: US (occurrence: US)
  Receive Date: 20200922
  Receipt Date: 20201221
  Transmission Date: 20210113
  Serious: Yes (Hospitalization, Other)
  Sender: FDA-Public Use
  Company Number: US-B.I. PHARMACEUTICALS,INC./RIDGEFIELD-2019-MR-110751

PATIENT
  Age: 85 Year
  Sex: Female

DRUGS (4)
  1. OFEV [Suspect]
     Active Substance: NINTEDANIB
     Indication: IDIOPATHIC PULMONARY FIBROSIS
     Dosage: 150MG BID
     Route: 048
     Dates: start: 20191026
  2. OFEV [Suspect]
     Active Substance: NINTEDANIB
     Dosage: 100MG DAILY
     Route: 048
     Dates: start: 20200725
  3. OFEV [Suspect]
     Active Substance: NINTEDANIB
     Route: 048
     Dates: start: 20200817
  4. OFEV [Suspect]
     Active Substance: NINTEDANIB
     Route: 048
     Dates: start: 20191218

REACTIONS (36)
  - Pulmonary congestion [Recovered/Resolved]
  - Haemoglobin decreased [Unknown]
  - Balance disorder [Unknown]
  - Abdominal discomfort [Not Recovered/Not Resolved]
  - Lower respiratory tract infection bacterial [Recovering/Resolving]
  - Weight decreased [Not Recovered/Not Resolved]
  - Hypotension [Unknown]
  - Nausea [Recovering/Resolving]
  - Diarrhoea [Not Recovered/Not Resolved]
  - Nausea [Not Recovered/Not Resolved]
  - Abdominal pain upper [Unknown]
  - Nausea [Recovered/Resolved]
  - Constipation [Unknown]
  - Respiratory tract congestion [Unknown]
  - Dyspnoea [Recovered/Resolved]
  - Malaise [Not Recovered/Not Resolved]
  - White blood cell count increased [Recovered/Resolved]
  - Asthenia [Not Recovered/Not Resolved]
  - Diarrhoea [Not Recovered/Not Resolved]
  - Peripheral swelling [Not Recovered/Not Resolved]
  - Eating disorder [Unknown]
  - Bronchitis [Recovered/Resolved]
  - Vomiting [Recovering/Resolving]
  - Head discomfort [Unknown]
  - Hypotension [Recovered/Resolved]
  - Pulmonary pain [Recovered/Resolved]
  - Blood potassium decreased [Unknown]
  - Blood potassium abnormal [Unknown]
  - Diarrhoea [Recovered/Resolved]
  - Feeling abnormal [Unknown]
  - Blood pressure increased [Not Recovered/Not Resolved]
  - Alopecia [Not Recovered/Not Resolved]
  - Flatulence [Not Recovered/Not Resolved]
  - Decreased appetite [Not Recovered/Not Resolved]
  - Dental caries [Not Recovered/Not Resolved]
  - Tooth extraction [Unknown]

NARRATIVE: CASE EVENT DATE: 201910
